FAERS Safety Report 8767411 (Version 2)
Quarter: 2012Q4

REPORT INFORMATION
  Report Type: 
  Country: US (occurrence: US)
  Receive Date: 20120903
  Receipt Date: 20121212
  Transmission Date: 20130627
  Serious: Yes (Other)
  Sender: FDA-Public Use
  Company Number: US-BAYER-2012-088402

PATIENT
  Age: 38 Year
  Sex: Female
  Weight: 63.49 kg

DRUGS (9)
  1. YASMIN [Suspect]
     Indication: CONTRACEPTION
     Dosage: UNK
     Dates: start: 201003, end: 201106
  2. YASMIN [Suspect]
     Indication: ACNE
  3. YASMIN [Suspect]
     Indication: PREMENSTRUAL DYSPHORIC DISORDER
  4. BUPROPION [Concomitant]
     Indication: DEPRESSION
     Dosage: 150 mg, UNK
  5. MELOXICAM [Concomitant]
     Dosage: 7.5 mg, UNK
  6. ONDANSETRON [Concomitant]
     Dosage: 40 mg, UNK
  7. OXYCODONE/APAP [Concomitant]
     Dosage: 5-325 mg
  8. VITAMIN D [Concomitant]
     Dosage: 5000 units
  9. CYCLOBENZAPRINE [Concomitant]
     Dosage: 10 mg, UNK

REACTIONS (7)
  - Ovarian vein thrombosis [None]
  - Pain [None]
  - General physical health deterioration [None]
  - Injury [None]
  - Emotional distress [None]
  - Pain [None]
  - Anxiety [None]
